FAERS Safety Report 22221847 (Version 1)
Quarter: 2023Q2

REPORT INFORMATION
  Report Type: Spontaneous
  Country: CN (occurrence: CN)
  Receive Date: 20230418
  Receipt Date: 20230418
  Transmission Date: 20230722
  Serious: Yes (Hospitalization)
  Sender: FDA-Public Use
  Company Number: None

PATIENT
  Age: 69 Year
  Sex: Female
  Weight: 65 kg

DRUGS (6)
  1. CYCLOPHOSPHAMIDE [Suspect]
     Active Substance: CYCLOPHOSPHAMIDE
     Indication: Breast cancer
     Dosage: 1 G, QD, DILUTED WITH NORMAL SALINE (NS) 100ML, FIRST CHEMOTHERAPY
     Route: 041
     Dates: start: 20230325, end: 20230325
  2. CYCLOPHOSPHAMIDE [Suspect]
     Active Substance: CYCLOPHOSPHAMIDE
     Indication: Chemotherapy
  3. SODIUM CHLORIDE [Suspect]
     Active Substance: SODIUM CHLORIDE
     Indication: Medication dilution
     Dosage: 100 ML, QD, USED TO DILUTE CYCLOPHOSPHAMIDE 1G, FIRST CHEMOTHERAPY
     Route: 041
     Dates: start: 20230325, end: 20230325
  4. SODIUM CHLORIDE [Suspect]
     Active Substance: SODIUM CHLORIDE
     Dosage: 86 ML, QD, USED TO DILUTE PACLITAXEL 430MG, FIRST CHEMOTHERAPY
     Route: 041
     Dates: start: 20230325, end: 20230325
  5. PACLITAXEL [Suspect]
     Active Substance: PACLITAXEL
     Indication: Breast cancer
     Dosage: 430 MG, QD, DILUTED WITH NORMAL SALINE (NS) 86ML, FIRST CHEMOTHERAPY
     Route: 041
     Dates: start: 20230325, end: 20230325
  6. PACLITAXEL [Suspect]
     Active Substance: PACLITAXEL
     Indication: Chemotherapy

REACTIONS (1)
  - Neutrophil count decreased [Recovering/Resolving]

NARRATIVE: CASE EVENT DATE: 20230402
